FAERS Safety Report 17258338 (Version 3)
Quarter: 2020Q1

REPORT INFORMATION
  Report Type: Spontaneous
  Country: US (occurrence: US)
  Receive Date: 20200110
  Receipt Date: 20200311
  Transmission Date: 20200409
  Serious: Yes (Death, Hospitalization, Other)
  Sender: FDA-Public Use
  Company Number: US-PFIZER INC-2019385046

PATIENT
  Age: 74 Year
  Sex: Male

DRUGS (3)
  1. SUTENT [Suspect]
     Active Substance: SUNITINIB MALATE
     Indication: NEUROENDOCRINE TUMOUR
     Dosage: 25 MG, ALTERNATE DAY (EVERY OTHER DAY TO STRETCH THEM OUT)
  2. SUTENT [Suspect]
     Active Substance: SUNITINIB MALATE
     Dosage: 25 MG, ALTERNATE DAY (25MG EVERY OTHER DAY)
     Route: 048
     Dates: start: 201811, end: 202001
  3. SUTENT [Suspect]
     Active Substance: SUNITINIB MALATE
     Indication: PANCREATIC NEUROENDOCRINE TUMOUR
     Dosage: 25 MG, 1X/DAY
     Route: 048

REACTIONS (5)
  - Product use in unapproved indication [Unknown]
  - Spinal fracture [Unknown]
  - Fall [Unknown]
  - Death [Fatal]
  - Off label use [Unknown]

NARRATIVE: CASE EVENT DATE: 20200125
